FAERS Safety Report 5963330-8 (Version None)
Quarter: 2008Q4

REPORT INFORMATION
  Report Type: 
  Country: None (occurrence: None)
  Receive Date: 20081119
  Receipt Date: 20080904
  Transmission Date: 20090506
  Serious: No
  Sender: FDA-Public Use
  Company Number: WAES 0809USA00812

PATIENT
  Sex: Male

DRUGS (4)
  1. JANUVIA [Suspect]
     Indication: DIABETES MELLITUS
     Dosage: 100 MG/DAILY/PO
     Route: 048
     Dates: start: 20080804
  2. LISINOPRIL [Concomitant]
  3. LOVASTATIN [Concomitant]
  4. METFORMIN HCL [Concomitant]

REACTIONS (1)
  - ABNORMAL DREAMS [None]
